FAERS Safety Report 21258574 (Version 2)
Quarter: 2022Q3

REPORT INFORMATION
  Report Type: Spontaneous
  Country: None (occurrence: US)
  Receive Date: 20220826
  Receipt Date: 20220826
  Transmission Date: 20221027
  Serious: No
  Sender: FDA-Public Use
  Company Number: US-ITALFARMACO SPA-2132265

PATIENT
  Age: 57 Year
  Sex: Male

DRUGS (8)
  1. TIGLUTIK [Suspect]
     Active Substance: RILUZOLE
     Indication: Amyotrophic lateral sclerosis
     Route: 048
     Dates: start: 20220521
  2. CETIRIZINE [Concomitant]
     Active Substance: CETIRIZINE HYDROCHLORIDE
  3. HEPARIN LOCK FLUSH [Concomitant]
     Active Substance: HEPARIN SODIUM
  4. LISINOPRIL [Concomitant]
     Active Substance: LISINOPRIL
  5. RADICAVA [Concomitant]
     Active Substance: EDARAVONE
  6. SERTRALINE [Concomitant]
     Active Substance: SERTRALINE HYDROCHLORIDE
  7. TETRAHYDROCANNABINOLS NOS (TETRAHYDROCANNABINOLS NOS) [Concomitant]
  8. TIGLUTIK [Suspect]
     Active Substance: RILUZOLE
     Route: 051

REACTIONS (2)
  - Cough [Unknown]
  - Secretion discharge [Unknown]

NARRATIVE: CASE EVENT DATE: 20220613
